FAERS Safety Report 18285434 (Version 1)
Quarter: 2020Q3

REPORT INFORMATION
  Report Type: Spontaneous
  Country: US (occurrence: US)
  Receive Date: 20200918
  Receipt Date: 20200918
  Transmission Date: 20201103
  Serious: Yes (Hospitalization)
  Sender: FDA-Public Use
  Company Number: US-FRESENIUS MEDICAL CARE RENAL THERAPIES GROUP-FMC-2009-001091

PATIENT
  Age: 58 Year
  Sex: Male
  Weight: 126 kg

DRUGS (3)
  1. DELFLEX WITH DEXTROSE 2.5% LOW MAGNESIUM LOW CALCIUM [Suspect]
     Active Substance: CALCIUM CHLORIDE\DEXTROSE\MAGNESIUM CHLORIDE\SODIUM CHLORIDE\SODIUM LACTATE
     Indication: END STAGE RENAL DISEASE
     Dosage: 3000 ML FOR 6 CYCLES WITH A LAST FILL OF EXTRANEAL (ICODEXTRIN) AT 2000 ML, SINCE 2/APR/2019
     Route: 033
     Dates: start: 20190402
  2. DELFLEX WITH DEXTROSE 4.25% LOW MAGNESIUM LOW CALCIUM [Suspect]
     Active Substance: CALCIUM CHLORIDE\DEXTROSE\MAGNESIUM CHLORIDE\SODIUM CHLORIDE\SODIUM LACTATE
     Indication: END STAGE RENAL DISEASE
     Dosage: 3000 ML FOR 6 CYCLES WITH A LAST FILL OF EXTRANEAL (ICODEXTRIN) AT 2000 ML, SINCE 2/APR/2019
     Route: 033
     Dates: start: 20190402
  3. EXTRANEAL [Suspect]
     Active Substance: CALCIUM CHLORIDE\ICODEXTRIN\MAGNESIUM CHLORIDE\SODIUM CHLORIDE\SODIUM LACTATE
     Indication: END STAGE RENAL DISEASE
     Dosage: 3000 ML FOR 6 CYCLES WITH A LAST FILL OF EXTRANEAL (ICODEXTRIN) AT 2000 ML, SINCE 2/APR/2019
     Route: 033

REACTIONS (1)
  - Cerebrovascular accident [Recovering/Resolving]
